FAERS Safety Report 8524861-X (Version None)
Quarter: 2012Q3

REPORT INFORMATION
  Report Type: 
  Country: None (occurrence: None)
  Receive Date: 20120720
  Receipt Date: 20120716
  Transmission Date: 20120928
  Serious: Yes (Death, Other)
  Sender: FDA-Public Use
  Company Number: PHHY2012JP060782

PATIENT
  Age: 65 Year
  Sex: Female

DRUGS (4)
  1. IMMUNE GLOBULIN NOS [Concomitant]
     Route: 042
  2. CYCLOSPORINE [Suspect]
     Indication: INTERSTITIAL LUNG DISEASE
     Dosage: 0.17 MG/KG, PER HOUR
     Route: 042
  3. PREDNISOLONE [Suspect]
     Indication: INTERSTITIAL LUNG DISEASE
     Dosage: 1 MG/KG, PER DAY
  4. METHYLPREDNISOLONE [Suspect]
     Indication: INTERSTITIAL LUNG DISEASE

REACTIONS (5)
  - RASH [None]
  - RESPIRATORY FAILURE [None]
  - INTERSTITIAL LUNG DISEASE [None]
  - RENAL IMPAIRMENT [None]
  - DISEASE PROGRESSION [None]
